FAERS Safety Report 9460737 (Version 1)
Quarter: 2013Q3

REPORT INFORMATION
  Report Type: Spontaneous
  Country: US (occurrence: US)
  Receive Date: 20130815
  Receipt Date: 20130815
  Transmission Date: 20140515
  Serious: Yes (Hospitalization)
  Sender: FDA-Public Use
  Company Number: US-GLAXOSMITHKLINE-A1036818A

PATIENT
  Sex: Female

DRUGS (4)
  1. ADVAIR [Suspect]
     Indication: CHRONIC OBSTRUCTIVE PULMONARY DISEASE
     Dosage: 1PUFF PER DAY
     Route: 055
  2. METOPROLOL [Concomitant]
  3. XANAX [Concomitant]
  4. NEBULIZER [Concomitant]

REACTIONS (5)
  - Myocardial infarction [Unknown]
  - Underdose [Unknown]
  - Off label use [Unknown]
  - Dyspnoea [Unknown]
  - Panic attack [Unknown]
